FAERS Safety Report 4703141-4 (Version None)
Quarter: 2005Q2

REPORT INFORMATION
  Report Type: 
  Country: None (occurrence: None)
  Receive Date: 20050629
  Receipt Date: 20050622
  Transmission Date: 20051028
  Serious: Yes (Death, Life-Threatening)
  Sender: FDA-Public Use
  Company Number: NL-GLAXOSMITHKLINE-B0385843A

PATIENT
  Sex: Female

DRUGS (2)
  1. AVANDIA [Suspect]
  2. UNSPECIFIED MEDICATION [Concomitant]

REACTIONS (1)
  - CEREBRAL HAEMORRHAGE [None]
